FAERS Safety Report 7514581-2 (Version None)
Quarter: 2011Q2

REPORT INFORMATION
  Report Type: 
  Country: None (occurrence: None)
  Receive Date: 20110601
  Receipt Date: 20101228
  Transmission Date: 20111010
  Serious: No
  Sender: FDA-Public Use
  Company Number: US-BAYER-2011-000977

PATIENT
  Age: 21 Year
  Sex: Female
  Weight: 63.492 kg

DRUGS (4)
  1. LEXAPRO [Concomitant]
  2. STRONGX [Concomitant]
  3. MAGNEVIST [Suspect]
     Indication: NUCLEAR MAGNETIC RESONANCE IMAGING
     Dosage: 13 ML, ONCE
     Route: 042
     Dates: start: 20101229, end: 20101229
  4. VALIUM [Concomitant]

REACTIONS (2)
  - PRURITUS [None]
  - URTICARIA [None]
